FAERS Safety Report 4343140-8 (Version None)
Quarter: 2004Q2

REPORT INFORMATION
  Report Type: 
  Country: None (occurrence: None)
  Receive Date: 20040416
  Receipt Date: 20040405
  Transmission Date: 20050107
  Serious: Yes (Death, Hospitalization)
  Sender: FDA-Public Use
  Company Number: US-JNJFOC-20040400764

PATIENT
  Age: 71 Year
  Sex: Female

DRUGS (14)
  1. INFLIXIMAB (INFLIXIMAB, RECOMBINANT) LYOPHILIZED POWDER [Suspect]
     Indication: RHEUMATOID ARTHRITIS
     Dosage: INTRAVENOUS
     Route: 042
     Dates: start: 20001127, end: 20030428
  2. ALTACE [Concomitant]
  3. AMIODARONE HCL [Concomitant]
  4. ASPIRIN [Concomitant]
  5. ATENOLOL [Concomitant]
  6. CELEBREX [Concomitant]
  7. DIGOXIN [Concomitant]
  8. FUROSEMIDE [Concomitant]
  9. PLAQUENIL [Concomitant]
  10. TYLENOL PM (TYLENOL PM) [Concomitant]
  11. ZETIA (ALL  OTHER NON-THERAPEUTIC PRIODUCTS) [Concomitant]
  12. GLUCOSAMINE/CHONDROITIN (GLUCOSAMINE W/CHONDROITIN) [Concomitant]
  13. CALCIUM + D (CALCIUM) [Concomitant]
  14. MULTIVITAMIN [Concomitant]

REACTIONS (3)
  - ACUTE MYOCARDIAL INFARCTION [None]
  - CARDIAC FAILURE CONGESTIVE [None]
  - PNEUMONIA [None]
